FAERS Safety Report 18288292 (Version 1)
Quarter: 2020Q3

REPORT INFORMATION
  Report Type: Spontaneous
  Country: US (occurrence: US)
  Receive Date: 20200919
  Receipt Date: 20200919
  Transmission Date: 20201103
  Serious: Yes (Hospitalization)
  Sender: FDA-Public Use
  Company Number: None

PATIENT
  Age: 39 Year
  Sex: Male
  Weight: 113.1 kg

DRUGS (5)
  1. RISPERIDONE. [Concomitant]
     Active Substance: RISPERIDONE
  2. LEUCOVORIN CALCIUM. [Suspect]
     Active Substance: LEUCOVORIN CALCIUM
     Dates: end: 20200820
  3. ELOXATIN [Suspect]
     Active Substance: OXALIPLATIN
     Dates: end: 20200820
  4. BENZTROPINE. [Concomitant]
     Active Substance: BENZTROPINE
  5. 5?FLUOROURACIL (5?FU) (19893) [Suspect]
     Active Substance: FLUOROURACIL
     Dates: end: 20200822

REACTIONS (9)
  - Psychotic disorder [None]
  - Thinking abnormal [None]
  - Schizophrenia [None]
  - Emotional distress [None]
  - Persecutory delusion [None]
  - Hypoalbuminaemia [None]
  - Paranoia [None]
  - Hypokalaemia [None]
  - Diarrhoea [None]

NARRATIVE: CASE EVENT DATE: 20200830
